FAERS Safety Report 13964257 (Version 1)
Quarter: 2017Q3

REPORT INFORMATION
  Report Type: Spontaneous
  Country: US (occurrence: US)
  Receive Date: 20170913
  Receipt Date: 20170913
  Transmission Date: 20171128
  Serious: Yes (Hospitalization, Other)
  Sender: FDA-Public Use
  Company Number: US-JNJFOC-20170901993

PATIENT
  Age: 73 Year
  Sex: Male
  Weight: 67.99 kg

DRUGS (6)
  1. NINLARO [Suspect]
     Active Substance: IXAZOMIB
     Indication: PLASMA CELL MYELOMA
     Dosage: FOR 3 WEEKS AND FOLLOWED BY 1 WEEK OFF PERIOD OF EVERY 28 DAY CYCLE
     Route: 048
     Dates: start: 20170701
  2. NINLARO [Suspect]
     Active Substance: IXAZOMIB
     Indication: PLASMA CELL MYELOMA
     Route: 048
     Dates: end: 20170707
  3. METOPROLOL. [Concomitant]
     Active Substance: METOPROLOL
  4. DARZALEX [Suspect]
     Active Substance: DARATUMUMAB
     Indication: PLASMA CELL MYELOMA
     Route: 042
     Dates: start: 2017
  5. NINLARO [Suspect]
     Active Substance: IXAZOMIB
     Indication: PLASMA CELL MYELOMA
     Dosage: FOR 3 WEEKS FOLLOWED BY A ONE WEEK OFF PERIOD OF EVERY 28 DAY CYCLE
     Route: 048
     Dates: start: 201702
  6. CALCIUM [Concomitant]
     Active Substance: CALCIUM

REACTIONS (15)
  - Decreased appetite [Not Recovered/Not Resolved]
  - Blood pressure decreased [Not Recovered/Not Resolved]
  - Muscular weakness [Not Recovered/Not Resolved]
  - Nausea [Not Recovered/Not Resolved]
  - Back pain [Not Recovered/Not Resolved]
  - Muscular weakness [Not Recovered/Not Resolved]
  - Pain in extremity [Unknown]
  - Syncope [Not Recovered/Not Resolved]
  - Seizure [Not Recovered/Not Resolved]
  - Musculoskeletal stiffness [Unknown]
  - Weight decreased [Not Recovered/Not Resolved]
  - Adverse event [Not Recovered/Not Resolved]
  - Dizziness [Unknown]
  - Cardiac arrest [Not Recovered/Not Resolved]
  - Abdominal pain [Unknown]

NARRATIVE: CASE EVENT DATE: 2017
